FAERS Safety Report 9200763 (Version 1)
Quarter: 2013Q1

REPORT INFORMATION
  Report Type: Spontaneous
  Country: US (occurrence: None)
  Receive Date: 20130328
  Receipt Date: 20130328
  Transmission Date: 20140127
  Serious: Yes (Hospitalization, Other)
  Sender: FDA-Public Use
  Company Number: None

PATIENT
  Age: 77 Year
  Sex: Male
  Weight: 113.4 kg

DRUGS (19)
  1. SITAGLIPTIN [Suspect]
     Indication: TYPE 2 DIABETES MELLITUS
     Dosage: 50 MG ONCE DAILY PO
     Route: 048
  2. ALBUTEROL-IPRATROPIUM [Concomitant]
  3. CARVEDILOL [Concomitant]
  4. ENOXAPARIN [Concomitant]
  5. FLUTICASONE-SALMETEROL [Concomitant]
  6. FUROSEMIDE [Concomitant]
  7. GLIMEPIRIDE [Concomitant]
  8. INSULIN LISPRO [Concomitant]
  9. INSULIN NPH [Concomitant]
  10. LACTOBACILLUS GG [Concomitant]
  11. LISINOPRIL [Concomitant]
  12. METFORMIN [Concomitant]
  13. PRAVASTATIN [Concomitant]
  14. SILDENAFIL [Concomitant]
  15. TIOTROPIUM [Concomitant]
  16. TIOTROPIUM [Concomitant]
  17. CEFAZOLIN [Concomitant]
  18. VANCOMYCIN [Concomitant]
  19. MAGNESIUM SULFATE [Concomitant]

REACTIONS (2)
  - Blood glucose increased [None]
  - Lipase increased [None]
